FAERS Safety Report 23332463 (Version 1)
Quarter: 2023Q4

REPORT INFORMATION
  Report Type: Spontaneous
  Country: ES (occurrence: ES)
  Receive Date: 20231222
  Receipt Date: 20231222
  Transmission Date: 20240109
  Serious: Yes (Other)
  Sender: FDA-Public Use
  Company Number: ES-ABBVIE-5346346

PATIENT
  Age: 68 Year
  Sex: Male

DRUGS (8)
  1. NELARABINE [Suspect]
     Active Substance: NELARABINE
     Dosage: DAY 26
     Route: 065
  2. NELARABINE [Suspect]
     Active Substance: NELARABINE
     Indication: Product used for unknown indication
     Dosage: DAY 28
     Route: 065
  3. NELARABINE [Suspect]
     Active Substance: NELARABINE
     Dosage: UNK
     Route: 065
     Dates: start: 20230726
  4. VENETOCLAX [Suspect]
     Active Substance: VENETOCLAX
     Dosage: 100.000MG
     Route: 048
     Dates: start: 20230726, end: 20230726
  5. VENETOCLAX [Suspect]
     Active Substance: VENETOCLAX
     Dosage: 200.000MG
     Route: 048
     Dates: start: 20230727, end: 20230727
  6. VENETOCLAX [Suspect]
     Active Substance: VENETOCLAX
     Indication: T-cell type acute leukaemia
     Dosage: 400.000MG
     Route: 048
     Dates: start: 20230727, end: 20230808
  7. ACYCLOVIR [Concomitant]
     Active Substance: ACYCLOVIR
     Indication: Product used for unknown indication
     Route: 065
  8. LOSEC [Concomitant]
     Active Substance: OMEPRAZOLE
     Indication: Product used for unknown indication
     Route: 065

REACTIONS (3)
  - Blast cells [Unknown]
  - Neutropenia [Unknown]
  - Off label use [Unknown]

NARRATIVE: CASE EVENT DATE: 20230101
